FAERS Safety Report 9732520 (Version 1)
Quarter: 2013Q4

REPORT INFORMATION
  Report Type: Spontaneous
  Country: US (occurrence: US)
  Receive Date: 20131205
  Receipt Date: 20131205
  Transmission Date: 20140711
  Serious: Yes (Hospitalization)
  Sender: FDA-Public Use
  Company Number: US-BAYER-2013-147355

PATIENT
  Age: 17 Year
  Sex: Female
  Weight: 89.34 kg

DRUGS (9)
  1. YASMIN [Suspect]
     Route: 048
  2. OCELLA [Suspect]
     Route: 048
  3. STRATTERA [Concomitant]
     Dosage: 60 MG, UNK
  4. HYDROCODONE/ACETAMINOPHEN [Concomitant]
  5. PROMETHAZINE [Concomitant]
     Dosage: 12.5 MG, UNK
  6. PHENADOZ [Concomitant]
     Dosage: 12.5 MG, UNK
  7. CELEXA [Concomitant]
     Dosage: 70 MG, UNK
  8. CITALOPRAM [Concomitant]
     Dosage: 70 MG, UNK
  9. TRAZODONE [Concomitant]
     Dosage: 100 MG, UNK

REACTIONS (2)
  - Biliary dyskinesia [None]
  - Cholecystitis chronic [None]
